FAERS Safety Report 9188865 (Version 2)
Quarter: 2013Q2

REPORT INFORMATION
  Report Type: Report from Study
  Country: US (occurrence: US)
  Receive Date: 20130326
  Receipt Date: 20130401
  Transmission Date: 20140414
  Serious: Yes (Other)
  Sender: FDA-Public Use
  Company Number: US-ROCHE-1204224

PATIENT
  Age: 80 Year
  Sex: Female

DRUGS (1)
  1. ALTEPLASE [Suspect]
     Indication: CEREBROVASCULAR ACCIDENT
     Dosage: 10 PERCENT BOLUS OF 0.9 MG/KG WITHIN 1 HOUR OF ADMISSION
     Route: 040

REACTIONS (2)
  - NIH stroke scale score increased [Unknown]
  - Confusional state [Unknown]
